FAERS Safety Report 10387067 (Version 1)
Quarter: 2014Q3

REPORT INFORMATION
  Report Type: Spontaneous
  Country: US (occurrence: None)
  Receive Date: 20140814
  Receipt Date: 20140814
  Transmission Date: 20150326
  Serious: Yes (Other)
  Sender: FDA-Public Use
  Company Number: None

PATIENT
  Age: 44 Year
  Sex: Female
  Weight: 65.77 kg

DRUGS (2)
  1. DULOXETINE [Suspect]
     Active Substance: DULOXETINE
     Indication: FIBROMYALGIA
     Dosage: 1 CAPSULE DAILY (60MG) ONCE DAILY TAKEN BY MOUTH
     Route: 048
     Dates: start: 20140701, end: 20140812
  2. DULOXETINE [Suspect]
     Active Substance: DULOXETINE
     Indication: NEUROPATHY PERIPHERAL
     Dosage: 1 CAPSULE DAILY (60MG) ONCE DAILY TAKEN BY MOUTH
     Route: 048
     Dates: start: 20140701, end: 20140812

REACTIONS (4)
  - Depression [None]
  - Vertigo [None]
  - Product substitution issue [None]
  - Paraesthesia [None]

NARRATIVE: CASE EVENT DATE: 20140805
